FAERS Safety Report 8245112-X (Version None)
Quarter: 2012Q1

REPORT INFORMATION
  Report Type: 
  Country: None (occurrence: None)
  Receive Date: 20120329
  Receipt Date: 20120319
  Transmission Date: 20120608
  Serious: Yes (Other)
  Sender: FDA-Public Use
  Company Number: JP-GLAXOSMITHKLINE-B0790528A

PATIENT
  Sex: Female

DRUGS (1)
  1. FLUTICASONE PROPIONATE [Suspect]
     Indication: ASTHMA
     Route: 055

REACTIONS (5)
  - GLOSSODYNIA [None]
  - ORAL CANDIDIASIS [None]
  - ORAL PAIN [None]
  - TONGUE DISORDER [None]
  - ASTHMA [None]
